FAERS Safety Report 9284710 (Version 4)
Quarter: 2013Q2

REPORT INFORMATION
  Report Type: Spontaneous
  Country: US (occurrence: US)
  Receive Date: 20130513
  Receipt Date: 20130621
  Transmission Date: 20140414
  Serious: No
  Sender: FDA-Public Use
  Company Number: US-BIOGENIDEC-2013BI039872

PATIENT
  Age: 46 Year
  Sex: Female

DRUGS (9)
  1. TYSABRI [Suspect]
     Indication: MULTIPLE SCLEROSIS
     Route: 042
     Dates: start: 20081027, end: 20100614
  2. TYSABRI [Suspect]
     Indication: MULTIPLE SCLEROSIS
     Route: 042
     Dates: start: 20120405, end: 20130311
  3. ASPIRIN [Concomitant]
     Route: 048
  4. ATORVASTATIN [Concomitant]
     Route: 048
  5. CALCIUM [Concomitant]
     Route: 048
  6. METFORMIN ER [Concomitant]
     Route: 048
  7. MULTIVITAMIN [Concomitant]
     Route: 048
  8. TIZANIDINE [Concomitant]
     Route: 048
  9. VITAMIN D [Concomitant]
     Route: 048

REACTIONS (2)
  - Infusion related reaction [Unknown]
  - Multiple sclerosis [Unknown]
